FAERS Safety Report 8232147-6 (Version None)
Quarter: 2012Q1

REPORT INFORMATION
  Report Type: 
  Country: None (occurrence: None)
  Receive Date: 20120323
  Receipt Date: 20120316
  Transmission Date: 20120608
  Serious: Yes (Other)
  Sender: FDA-Public Use
  Company Number: US-ROCHE-1024484

PATIENT
  Sex: Female
  Weight: 48.124 kg

DRUGS (1)
  1. ACCUTANE [Suspect]
     Indication: ACNE
     Dates: start: 20021101, end: 20030401

REACTIONS (7)
  - COLITIS ULCERATIVE [None]
  - EMOTIONAL DISTRESS [None]
  - ALANINE AMINOTRANSFERASE INCREASED [None]
  - PLATELET COUNT INCREASED [None]
  - ASPARTATE AMINOTRANSFERASE INCREASED [None]
  - ANXIETY [None]
  - INFLAMMATORY BOWEL DISEASE [None]
